FAERS Safety Report 12521442 (Version 5)
Quarter: 2017Q1

REPORT INFORMATION
  Report Type: Report from Study
  Country: DK (occurrence: DK)
  Receive Date: 20160701
  Receipt Date: 20170221
  Transmission Date: 20170428
  Serious: Yes (Other)
  Sender: FDA-Public Use
  Company Number: DK-CELGENEUS-DNK-2016064667

PATIENT
  Age: 71 Year
  Sex: Female
  Weight: 59 kg

DRUGS (22)
  1. BUFOMIX EASYHALER [Concomitant]
     Indication: ASTHMA
     Dosage: 9+320
     Route: 065
     Dates: start: 20160309
  2. MABLET [Concomitant]
     Indication: MAGNESIUM DEFICIENCY
     Dosage: 360 MG
     Route: 065
     Dates: start: 20151203
  3. ALENDRONAT [Concomitant]
     Active Substance: ALENDRONATE SODIUM
     Route: 065
     Dates: start: 20140211
  4. BUFOMIX EASYHALER [Concomitant]
     Route: 065
     Dates: start: 20141209
  5. SIMVASTATIN. [Concomitant]
     Active Substance: SIMVASTATIN
     Indication: BLOOD CHOLESTEROL INCREASED
     Dosage: 40 UG
     Route: 065
     Dates: start: 20140211
  6. CLOPIDOGREL [Concomitant]
     Active Substance: CLOPIDOGREL BISULFATE
     Indication: PROPHYLAXIS
     Dosage: 75 MG
     Route: 065
     Dates: start: 20141209
  7. KALEORID [Concomitant]
     Active Substance: POTASSIUM CHLORIDE
     Dosage: 40 MG
     Route: 065
  8. APOVIT VITAMIN C [Concomitant]
     Indication: VITAMIN SUPPLEMENTATION
     Dosage: 500 MG
     Route: 065
     Dates: start: 20140211
  9. SELEXID [Concomitant]
     Active Substance: AMDINOCILLIN PIVOXIL HYDROCHLORIDE
     Indication: CYSTITIS
     Dosage: 1200 MG
     Route: 065
     Dates: start: 20160316, end: 20160321
  10. ELTROXIN [Concomitant]
     Active Substance: LEVOTHYROXINE
     Indication: PROPHYLAXIS
     Dosage: 100 UG
     Route: 065
     Dates: start: 20140211
  11. ALENDRONAT [Concomitant]
     Active Substance: ALENDRONATE SODIUM
     Indication: OSTEOPOROSIS PROPHYLAXIS
     Dosage: 70 MG
     Route: 065
     Dates: start: 20140930
  12. NOVORAPID [Concomitant]
     Active Substance: INSULIN ASPART
     Indication: DIABETES MELLITUS
     Dosage: 24 IE
     Route: 065
     Dates: start: 20140211
  13. LATANOPROST. [Concomitant]
     Active Substance: LATANOPROST
     Indication: EYE DISORDER
     Dosage: 50 UG
     Route: 065
     Dates: start: 20140211
  14. KODIMAGNYL [Concomitant]
     Indication: PAIN
     Dosage: 500 MG
     Route: 048
     Dates: start: 20160321
  15. KALEORID [Concomitant]
     Active Substance: POTASSIUM CHLORIDE
     Indication: OEDEMA
     Dosage: 750 MG
     Route: 065
     Dates: start: 20160518
  16. REVLIMID [Suspect]
     Active Substance: LENALIDOMIDE
     Dosage: 10 MG
     Route: 048
     Dates: start: 20160830, end: 20160920
  17. BIOCLAVID [Concomitant]
     Active Substance: AMOXICILLIN\CLAVULANIC ACID
     Indication: COUGH
     Dosage: 1500 MG
     Route: 065
     Dates: start: 20160518
  18. AMLODIPIN [Concomitant]
     Active Substance: AMLODIPINE BESYLATE
     Indication: BLOOD PRESSURE MEASUREMENT
     Dosage: 5 MG
     Route: 065
     Dates: start: 20140211
  19. FURIX [Concomitant]
     Active Substance: FUROSEMIDE
     Indication: OEDEMA
     Dosage: 40 MG
     Route: 065
     Dates: start: 20160518
  20. LISINOPRIL AND HYDROCHLOROTHIAZIDE [Concomitant]
     Active Substance: HYDROCHLOROTHIAZIDE\LISINOPRIL
     Indication: HYPERTENSION
     Dosage: 20+12.5
     Route: 065
     Dates: start: 20130412
  21. REVLIMID [Suspect]
     Active Substance: LENALIDOMIDE
     Indication: MYELODYSPLASTIC SYNDROME
     Dosage: 10 MG
     Route: 048
     Dates: start: 20160510, end: 20160622
  22. ELTROXIN [Concomitant]
     Active Substance: LEVOTHYROXINE
     Dosage: 150 UG
     Route: 065
     Dates: start: 20140211

REACTIONS (5)
  - Palpitations [Recovered/Resolved]
  - Muscle spasms [Recovering/Resolving]
  - Headache [Recovering/Resolving]
  - Pulmonary embolism [Recovered/Resolved]
  - Dyspnoea [Recovered/Resolved]

NARRATIVE: CASE EVENT DATE: 20160608
